FAERS Safety Report 18756350 (Version 1)
Quarter: 2021Q1

REPORT INFORMATION
  Report Type: Spontaneous
  Country: US (occurrence: US)
  Receive Date: 20210115
  Receipt Date: 20210115
  Transmission Date: 20210419
  Serious: No
  Sender: FDA-Public Use
  Company Number: None

PATIENT
  Sex: Female

DRUGS (1)
  1. SAPROPTERIN DIHY ORAL PWD [Suspect]
     Active Substance: SAPROPTERIN
     Indication: PHENYLKETONURIA
     Route: 048
     Dates: start: 20201113

REACTIONS (5)
  - Anxiety [None]
  - Behaviour disorder [None]
  - Disturbance in attention [None]
  - Frustration tolerance decreased [None]
  - Product substitution issue [None]
